FAERS Safety Report 6745704-0 (Version None)
Quarter: 2010Q2

REPORT INFORMATION
  Report Type: 
  Country: None (occurrence: None)
  Receive Date: 20100528
  Receipt Date: 20100518
  Transmission Date: 20101027
  Serious: Yes (Other)
  Sender: FDA-Public Use
  Company Number: US-JNJFOC-20100507599

PATIENT
  Sex: Female
  Weight: 66.23 kg

DRUGS (11)
  1. REMICADE [Suspect]
     Indication: SARCOIDOSIS
     Route: 042
  2. REMICADE [Suspect]
     Indication: RHEUMATOID ARTHRITIS
     Route: 042
  3. PREDNISONE TAB [Concomitant]
     Indication: RHEUMATOID ARTHRITIS
  4. TOPROL-XL [Concomitant]
  5. LEVOXYL [Concomitant]
  6. FOSAMAX [Concomitant]
  7. LIBRAX [Concomitant]
  8. VITAMIN TAB [Concomitant]
  9. DILAUDID [Concomitant]
     Indication: PAIN
  10. DARVOCET [Concomitant]
     Indication: BREAKTHROUGH PAIN
  11. BENADRYL [Concomitant]
     Indication: PREMEDICATION

REACTIONS (4)
  - BLOOD CHOLESTEROL INCREASED [None]
  - FATIGUE [None]
  - PAIN [None]
  - WEIGHT INCREASED [None]
